FAERS Safety Report 8125271-X (Version None)
Quarter: 2012Q1

REPORT INFORMATION
  Report Type: 
  Country: None (occurrence: None)
  Receive Date: 20120209
  Receipt Date: 20120130
  Transmission Date: 20120608
  Serious: Yes (Other)
  Sender: FDA-Public Use
  Company Number: IT-ELI_LILLY_AND_COMPANY-IT201201009100

PATIENT
  Sex: Male

DRUGS (6)
  1. CARBOPLATIN [Concomitant]
     Dosage: 80 MG, UNKNOWN
     Route: 042
     Dates: start: 20111212
  2. DEXAMETHASONE SODIUM PHOSPHATE [Concomitant]
     Dosage: UNK, UNKNOWN
  3. GEMZAR [Suspect]
     Indication: LUNG NEOPLASM MALIGNANT
     Dosage: 2280 MG, UNKNOWN
     Route: 042
     Dates: start: 20111212
  4. GEMZAR [Suspect]
     Dosage: 1888 MG, UNKNOWN
     Route: 042
     Dates: start: 20111212
  5. CARBOPLATIN [Concomitant]
     Indication: LUNG NEOPLASM MALIGNANT
     Dosage: 150 MG, UNKNOWN
     Route: 042
     Dates: start: 20111212
  6. ONDANSETRON HCL [Concomitant]
     Dosage: UNK, UNKNOWN

REACTIONS (8)
  - NEUTROPENIA [None]
  - EPISTAXIS [None]
  - VOMITING [None]
  - THROMBOCYTOPENIA [None]
  - HAEMOPTYSIS [None]
  - NAUSEA [None]
  - HYPERTRANSAMINASAEMIA [None]
  - SUPRAVENTRICULAR EXTRASYSTOLES [None]
